FAERS Safety Report 9371980 (Version 2)
Quarter: 2014Q1

REPORT INFORMATION
  Report Type: Spontaneous
  Country: IL (occurrence: IL)
  Receive Date: 20130627
  Receipt Date: 20140102
  Transmission Date: 20141002
  Serious: Yes (Hospitalization)
  Sender: FDA-Public Use
  Company Number: IL-009507513-1306ISR009725

PATIENT
  Sex: Female

DRUGS (1)
  1. TEMODAL [Suspect]
     Route: 048

REACTIONS (2)
  - Hepatitis [Unknown]
  - Blood bilirubin increased [Unknown]
